FAERS Safety Report 9792030 (Version 3)
Quarter: 2014Q1

REPORT INFORMATION
  Report Type: Spontaneous
  Country: JP (occurrence: JP)
  Receive Date: 20140102
  Receipt Date: 20140228
  Transmission Date: 20141002
  Serious: Yes (Life-Threatening)
  Sender: FDA-Public Use
  Company Number: JP-SA-2013SA135988

PATIENT
  Age: 57 Year
  Sex: Male

DRUGS (4)
  1. AVAPRO [Suspect]
     Indication: HYPERTENSION
     Route: 048
     Dates: start: 20120925, end: 20131102
  2. MOSAPRIDE [Concomitant]
  3. PROTON PUMP INHIBITORS [Concomitant]
  4. AMLODIN [Concomitant]

REACTIONS (3)
  - Gait disturbance [Recovered/Resolved]
  - Hyperhidrosis [Recovered/Resolved]
  - Malaise [Recovered/Resolved]
